FAERS Safety Report 8727620 (Version 3)
Quarter: 2014Q3

REPORT INFORMATION
  Report Type: Spontaneous
  Country: US (occurrence: US)
  Receive Date: 20120816
  Receipt Date: 20140918
  Transmission Date: 20150326
  Serious: Yes (Other)
  Sender: FDA-Public Use
  Company Number: US-ASTRAZENECA-2012SE56348

PATIENT
  Age: 41 Year
  Sex: Female
  Weight: 76.2 kg

DRUGS (6)
  1. NEXIUM [Suspect]
     Active Substance: ESOMEPRAZOLE MAGNESIUM
     Indication: GASTROOESOPHAGEAL REFLUX DISEASE
     Route: 048
  2. LIPITOR [Concomitant]
     Active Substance: ATORVASTATIN CALCIUM
     Indication: BLOOD PRESSURE ABNORMAL
     Dosage: DAILY
  3. CLONADINE [Concomitant]
     Indication: BLOOD PRESSURE ABNORMAL
     Dosage: AT NIGHT
  4. NORVASC [Concomitant]
     Active Substance: AMLODIPINE BESYLATE
     Indication: BLOOD PRESSURE ABNORMAL
     Dosage: DAILY
  5. NEXIUM [Suspect]
     Active Substance: ESOMEPRAZOLE MAGNESIUM
     Indication: GASTROOESOPHAGEAL REFLUX DISEASE
     Route: 048
  6. NEXIUM [Suspect]
     Active Substance: ESOMEPRAZOLE MAGNESIUM
     Indication: GASTROOESOPHAGEAL REFLUX DISEASE
     Route: 048
     Dates: start: 2013

REACTIONS (14)
  - Fall [Unknown]
  - Back pain [Unknown]
  - Cyst [Unknown]
  - Malaise [Unknown]
  - Intentional product misuse [Unknown]
  - Blood pressure increased [Unknown]
  - Muscle strain [Unknown]
  - Choking [Unknown]
  - Gastrooesophageal reflux disease [Unknown]
  - Regurgitation [Unknown]
  - Anxiety [Unknown]
  - Sleep disorder due to a general medical condition [Unknown]
  - Drug dose omission [Not Recovered/Not Resolved]
  - Adverse event [Unknown]

NARRATIVE: CASE EVENT DATE: 2010
